FAERS Safety Report 5272140-9 (Version None)
Quarter: 2007Q1

REPORT INFORMATION
  Report Type: 
  Country: None (occurrence: None)
  Receive Date: 20070322
  Receipt Date: 20070312
  Transmission Date: 20070707
  Serious: Yes (Other)
  Sender: FDA-Public Use
  Company Number: 2007AP01598

PATIENT
  Age: 10889 Day
  Sex: Female
  Weight: 65 kg

DRUGS (3)
  1. XYLOCAINE [Suspect]
     Indication: INFILTRATION ANAESTHESIA
     Route: 058
     Dates: start: 20070201, end: 20070201
  2. SOLDEM 3A [Concomitant]
     Indication: UTERINE HAEMORRHAGE
     Route: 042
     Dates: start: 20070201
  3. ATONIN-O [Concomitant]
     Indication: UTERINE HAEMORRHAGE
     Route: 042
     Dates: start: 20070201

REACTIONS (1)
  - DELIRIUM [None]
